FAERS Safety Report 6482446-3 (Version None)
Quarter: 2009Q4

REPORT INFORMATION
  Report Type: 
  Country: None (occurrence: None)
  Receive Date: 20091208
  Receipt Date: 20091009
  Transmission Date: 20100525
  Serious: No
  Sender: FDA-Public Use
  Company Number: US-AMGEN-TCS368486

PATIENT
  Sex: Female

DRUGS (2)
  1. ENBREL [Suspect]
     Indication: RHEUMATOID ARTHRITIS
     Route: 058
     Dates: start: 19990101
  2. CYTOXAN [Concomitant]

REACTIONS (3)
  - INJECTION SITE PAIN [None]
  - JOINT SWELLING [None]
  - RHEUMATOID ARTHRITIS [None]
